APPROVED DRUG PRODUCT: TRAVERT 10% IN PLASTIC CONTAINER
Active Ingredient: INVERT SUGAR
Strength: 10GM/100ML
Dosage Form/Route: INJECTABLE;INJECTION
Application: N016717 | Product #001
Applicant: BAXTER HEALTHCARE CORP
Approved: Approved Prior to Jan 1, 1982 | RLD: No | RS: No | Type: DISCN